FAERS Safety Report 10061305 (Version 1)
Quarter: 2014Q2

REPORT INFORMATION
  Report Type: Spontaneous
  Country: FR (occurrence: FR)
  Receive Date: 20140407
  Receipt Date: 20140407
  Transmission Date: 20141212
  Serious: Yes (Death, Hospitalization)
  Sender: FDA-Public Use
  Company Number: FR-UCBSA-116770

PATIENT
  Age: 76 Year
  Sex: Male

DRUGS (9)
  1. VIMPAT [Suspect]
     Dosage: STRENGTH: 100 MG
     Route: 048
     Dates: start: 20140208, end: 20140211
  2. METHOTREXATE [Suspect]
     Dosage: 15 MG PER CYCLE, TOTAL ADMINISTERED DOSE: 30 MG
     Route: 037
     Dates: start: 20140114, end: 20140204
  3. METHOTREXATE [Suspect]
     Dosage: 1500 MG/M2 PER CYCLE, PERFUSION, TOTAL ADMINISTERED DOSE: 4950 MG
     Route: 042
     Dates: start: 20140122, end: 20140205
  4. CYTARABINE [Suspect]
     Dosage: 40 MG PER CYCLE, TOTAL ADMINISTERED DOSE: 80 MG
     Route: 037
     Dates: start: 20140114, end: 20140204
  5. CIRCADIN [Suspect]
     Dosage: STRENGTH: 2MG, EXTENDED RELEASE TABLET
     Route: 048
     Dates: start: 20140131, end: 20140211
  6. CONTRAMAL [Suspect]
     Route: 042
     Dates: start: 20140208, end: 20140211
  7. SINEMET [Concomitant]
  8. SINEMET [Concomitant]
     Dosage: STRENGTH: 100MG/10 MG, SCORED TABLET
     Route: 048
     Dates: start: 20140201, end: 20140213
  9. HYDROCORTISONE HEMISUCCINATE [Concomitant]
     Dosage: 20 MG
     Route: 037
     Dates: start: 20140114

REACTIONS (1)
  - Encephalopathy [Fatal]
